FAERS Safety Report 17071892 (Version 2)
Quarter: 2019Q4

REPORT INFORMATION
  Report Type: Other
  Country: DE (occurrence: DE)
  Receive Date: 20191125
  Receipt Date: 20191223
  Transmission Date: 20200122
  Serious: Yes (Hospitalization, Other)
  Sender: FDA-Public Use
  Company Number: DE-CELLTRION INC.-2019DE026616

PATIENT

DRUGS (49)
  1. VINCRISTINE [Suspect]
     Active Substance: VINCRISTINE
     Dosage: 1 MG, UNK
     Route: 041
     Dates: start: 20181219, end: 20181219
  2. PARACETAMOL [Concomitant]
     Active Substance: ACETAMINOPHEN
     Indication: PROPHYLAXIS
     Dosage: 1000 MG, UNK
     Route: 048
     Dates: start: 20180917, end: 20190305
  3. COTRIM FORTE [Concomitant]
     Active Substance: SULFAMETHOXAZOLE\TRIMETHOPRIM
     Indication: PROPHYLAXIS
     Dosage: 960 MG, UNK
     Route: 048
     Dates: start: 20180917, end: 20190401
  4. UROMITEXAN [Concomitant]
     Active Substance: MESNA
     Indication: PROPHYLAXIS
     Dosage: 800 MG, UNK
     Route: 048
     Dates: start: 20180918, end: 20190305
  5. VINCRISTINE [Suspect]
     Active Substance: VINCRISTINE
     Dosage: 1 MG, UNK
     Route: 041
     Dates: start: 20181009, end: 20181009
  6. PREDNISONE. [Suspect]
     Active Substance: PREDNISONE
     Dosage: 500 MG, UNK
     Route: 048
     Dates: start: 20181031, end: 20181104
  7. DOXORUBICIN [Suspect]
     Active Substance: DOXORUBICIN
     Dosage: 70 MG, UNK
     Route: 041
     Dates: start: 20181031, end: 20181031
  8. ONDANSETRON [Concomitant]
     Active Substance: ONDANSETRON
     Dosage: 8 MG, UNK
     Route: 048
     Dates: start: 20180918, end: 20190305
  9. PANTOPRAZOL [Concomitant]
     Active Substance: PANTOPRAZOLE SODIUM
     Indication: PROPHYLAXIS
     Dosage: 20 MG, UNK
     Route: 048
     Dates: start: 20180917, end: 20190305
  10. ESOMEPRAZOL [Concomitant]
     Active Substance: ESOMEPRAZOLE
     Indication: PRODUCT USED FOR UNKNOWN INDICATION
     Dosage: 20 MG, UNK
     Route: 048
  11. RITUXIMAB (UNKNOWN) [Suspect]
     Active Substance: RITUXIMAB
     Indication: DIFFUSE LARGE B-CELL LYMPHOMA
     Dosage: 690 MG, UNK
     Route: 041
     Dates: start: 20180917, end: 20180917
  12. CYCLOPHOSPHAMIDE. [Suspect]
     Active Substance: CYCLOPHOSPHAMIDE
     Dosage: 1030 MG, UNK
     Route: 041
     Dates: start: 20181009, end: 20181009
  13. CYCLOPHOSPHAMIDE. [Suspect]
     Active Substance: CYCLOPHOSPHAMIDE
     Dosage: 23 MG, UNK
     Route: 041
     Dates: start: 20190109, end: 20190109
  14. RANITIDIN [Concomitant]
     Active Substance: RANITIDINE HYDROCHLORIDE
     Indication: PROPHYLAXIS
     Dosage: 1 AMPULLE
     Route: 042
     Dates: start: 20180917, end: 20190305
  15. ONDANSETRON [Concomitant]
     Active Substance: ONDANSETRON
     Indication: PROPHYLAXIS
     Dosage: 8 MG, UNK
     Route: 042
     Dates: start: 20180918
  16. BISOPROLOL [Concomitant]
     Active Substance: BISOPROLOL
     Indication: PRODUCT USED FOR UNKNOWN INDICATION
     Dosage: 2.5-0-1.25 MG
     Route: 048
  17. RITUXIMAB (UNKNOWN) [Suspect]
     Active Substance: RITUXIMAB
     Dosage: 680 MG, UNK
     Route: 041
     Dates: start: 20190204, end: 20190204
  18. RITUXIMAB (UNKNOWN) [Suspect]
     Active Substance: RITUXIMAB
     Dosage: 680 MG, UNK
     Route: 041
     Dates: start: 20190304, end: 20190304
  19. VINCRISTINE [Suspect]
     Active Substance: VINCRISTINE
     Indication: DIFFUSE LARGE B-CELL LYMPHOMA
     Dosage: 1 MG, UNK
     Route: 041
     Dates: start: 20180918, end: 20180918
  20. VINCRISTINE [Suspect]
     Active Substance: VINCRISTINE
     Dosage: 1 MG, UNK
     Route: 041
     Dates: start: 20181031, end: 20181031
  21. PREDNISONE. [Suspect]
     Active Substance: PREDNISONE
     Dosage: 500 MG, UNK
     Route: 048
     Dates: start: 20181009, end: 20181013
  22. PREDNISONE. [Suspect]
     Active Substance: PREDNISONE
     Dosage: 500 MG, UNK
     Route: 048
     Dates: start: 20190109, end: 20190113
  23. DOXORUBICIN [Suspect]
     Active Substance: DOXORUBICIN
     Dosage: 70 MG, UNK
     Route: 041
     Dates: start: 20181009, end: 20181009
  24. DOXORUBICIN [Suspect]
     Active Substance: DOXORUBICIN
     Dosage: 70 MG, UNK
     Route: 041
     Dates: start: 20181219, end: 20181219
  25. DOXORUBICIN [Suspect]
     Active Substance: DOXORUBICIN
     Dosage: 68 MG, UNK
     Route: 041
     Dates: start: 20190109, end: 20190109
  26. CITALOPRAM [Concomitant]
     Active Substance: CITALOPRAM HYDROBROMIDE
     Indication: PRODUCT USED FOR UNKNOWN INDICATION
     Dosage: UNK
     Route: 048
     Dates: start: 20180803
  27. DEXAMETHASON [Concomitant]
     Active Substance: DEXAMETHASONE
     Indication: PROPHYLAXIS
     Dosage: 20 MG, UNK
     Route: 042
     Dates: start: 20180917, end: 20190305
  28. RITUXIMAB (UNKNOWN) [Suspect]
     Active Substance: RITUXIMAB
     Dosage: 685 MG, UNK
     Route: 041
     Dates: start: 20181008, end: 20181008
  29. RITUXIMAB (UNKNOWN) [Suspect]
     Active Substance: RITUXIMAB
     Dosage: 685 MG, UNK
     Route: 041
     Dates: start: 20181030, end: 20181030
  30. PREDNISONE. [Suspect]
     Active Substance: PREDNISONE
     Indication: DIFFUSE LARGE B-CELL LYMPHOMA
     Dosage: 500 MG, UNK
     Route: 048
     Dates: start: 20180918, end: 20180922
  31. DOXORUBICIN [Suspect]
     Active Substance: DOXORUBICIN
     Dosage: 70 MG, UNK
     Route: 041
     Dates: start: 20181121, end: 20181121
  32. RITUXIMAB (UNKNOWN) [Suspect]
     Active Substance: RITUXIMAB
     Dosage: 685 MG, UNK
     Route: 041
     Dates: start: 20181120, end: 20181120
  33. RITUXIMAB (UNKNOWN) [Suspect]
     Active Substance: RITUXIMAB
     Dosage: 682 MG, UNK
     Route: 041
     Dates: start: 20190108, end: 20190108
  34. CYCLOPHOSPHAMIDE. [Suspect]
     Active Substance: CYCLOPHOSPHAMIDE
     Indication: DIFFUSE LARGE B-CELL LYMPHOMA
     Dosage: 1030 MG, UNK
     Route: 041
     Dates: start: 20180918, end: 20180918
  35. VINCRISTINE [Suspect]
     Active Substance: VINCRISTINE
     Dosage: 1 MG, UNK
     Route: 041
     Dates: start: 20190109, end: 20190109
  36. PREDNISONE. [Suspect]
     Active Substance: PREDNISONE
     Dosage: 500 MG, UNK
     Route: 048
     Dates: start: 20181121, end: 20181125
  37. PREDNISONE. [Suspect]
     Active Substance: PREDNISONE
     Dosage: 500 MG, UNK
     Route: 041
     Dates: start: 20181219, end: 20181223
  38. FENISTIL [Concomitant]
     Active Substance: DIMETHINDENE
     Indication: PROPHYLAXIS
     Dosage: 1 AMPULLE
     Route: 042
     Dates: start: 20180917, end: 20190305
  39. FUROSEMID [Concomitant]
     Active Substance: FUROSEMIDE
     Indication: PROPHYLAXIS
     Dosage: 20 MG, UNK
     Route: 042
     Dates: start: 20180918, end: 20190305
  40. RITUXIMAB (UNKNOWN) [Suspect]
     Active Substance: RITUXIMAB
     Dosage: 685 MG, UNK
     Route: 041
     Dates: start: 20181218, end: 20181218
  41. CYCLOPHOSPHAMIDE. [Suspect]
     Active Substance: CYCLOPHOSPHAMIDE
     Dosage: 1030 MG, UNK
     Route: 041
     Dates: start: 20181031, end: 20181031
  42. CYCLOPHOSPHAMIDE. [Suspect]
     Active Substance: CYCLOPHOSPHAMIDE
     Dosage: 1030 MG, UNK
     Route: 041
     Dates: start: 20181219, end: 20181219
  43. VINCRISTINE [Suspect]
     Active Substance: VINCRISTINE
     Dosage: 1 MG, UNK
     Route: 041
     Dates: start: 20181121, end: 20181121
  44. DOXORUBICIN [Suspect]
     Active Substance: DOXORUBICIN
     Indication: DIFFUSE LARGE B-CELL LYMPHOMA
     Dosage: 50 MG, UNK
     Route: 041
     Dates: start: 20180918, end: 20180918
  45. ALLOPURINOL. [Concomitant]
     Active Substance: ALLOPURINOL
     Indication: PROPHYLAXIS
     Dosage: 300 MG, UNK
     Route: 048
     Dates: start: 20180917, end: 20190305
  46. ACICLOVIR [Concomitant]
     Active Substance: ACYCLOVIR
     Indication: PROPHYLAXIS
     Dosage: 1200 MG, UNK
     Route: 048
     Dates: start: 20180917, end: 20190401
  47. CYCLOPHOSPHAMIDE. [Suspect]
     Active Substance: CYCLOPHOSPHAMIDE
     Dosage: 1030 MG, UNK
     Route: 041
     Dates: start: 20181121, end: 20181121
  48. CANDESARTAN. [Concomitant]
     Active Substance: CANDESARTAN
     Indication: PRODUCT USED FOR UNKNOWN INDICATION
     Dosage: UNK
     Route: 048
  49. HCT [Concomitant]
     Active Substance: HYDROCHLOROTHIAZIDE
     Indication: PRODUCT USED FOR UNKNOWN INDICATION
     Dosage: 25 MG, UNK
     Route: 048

REACTIONS (31)
  - Dyspnoea [Recovered/Resolved]
  - Cough [Recovered/Resolved]
  - Pain [Recovering/Resolving]
  - White blood cell count decreased [Recovered/Resolved]
  - Mucosal inflammation [Recovered/Resolved]
  - Dyspnoea [Recovered/Resolved]
  - Nail bed inflammation [Recovered/Resolved]
  - Red blood cell count decreased [Not Recovered/Not Resolved]
  - White blood cell count decreased [Recovered/Resolved]
  - Blood lactate dehydrogenase increased [Recovered/Resolved]
  - Pain in extremity [Recovered/Resolved]
  - Aphthous ulcer [Recovered/Resolved]
  - Urinary incontinence [Not Recovered/Not Resolved]
  - Underdose [Unknown]
  - Thrombocytopenia [Recovered/Resolved]
  - Anaemia [Recovered/Resolved]
  - Dysphagia [Recovering/Resolving]
  - Pyrexia [Recovered/Resolved]
  - Mucosal inflammation [Recovered/Resolved]
  - Cerebrovascular accident [Not Recovered/Not Resolved]
  - Fatigue [Recovered/Resolved]
  - Gingivitis [Recovered/Resolved]
  - White blood cell count decreased [Recovered/Resolved]
  - White blood cell count decreased [Recovered/Resolved]
  - Mucosal inflammation [Recovered/Resolved]
  - Cough [Recovered/Resolved]
  - Thrombocytopenia [Recovered/Resolved]
  - Arthralgia [Not Recovered/Not Resolved]
  - Alanine aminotransferase increased [Recovered/Resolved]
  - White blood cell count decreased [Recovered/Resolved]
  - Dry skin [Recovered/Resolved]

NARRATIVE: CASE EVENT DATE: 20180917
